FAERS Safety Report 10895892 (Version 1)
Quarter: 2015Q1

REPORT INFORMATION
  Report Type: Spontaneous
  Country: US (occurrence: US)
  Receive Date: 20150307
  Receipt Date: 20150307
  Transmission Date: 20150721
  Serious: No
  Sender: FDA-Public Use
  Company Number: US-ASTRAZENECA-2015SE18424

PATIENT
  Sex: Female
  Weight: 98 kg

DRUGS (22)
  1. VENLAFIXIN XR [Concomitant]
  2. METFORMIN [Concomitant]
     Active Substance: METFORMIN HYDROCHLORIDE
     Indication: TYPE 2 DIABETES MELLITUS
  3. BYDUREON [Suspect]
     Active Substance: EXENATIDE
     Indication: TYPE 2 DIABETES MELLITUS
     Route: 058
     Dates: start: 20150112, end: 20150201
  4. NOROTRIPTOLINE [Concomitant]
     Indication: ANTIDEPRESSANT THERAPY
  5. METOPROLOL TART [Concomitant]
     Active Substance: METOPROLOL TARTRATE
  6. HYDROCODONE [Concomitant]
     Active Substance: HYDROCODONE
  7. POLONAZETONE [Concomitant]
  8. LEVASTATIN [Concomitant]
  9. SINGULAR (MONTELUKAST) SODIUM [Concomitant]
  10. VITAMIN D3 [Concomitant]
     Active Substance: CHOLECALCIFEROL
  11. CALCIUM, MAGNESIUM, ZINC + VITAMIN D [Concomitant]
     Dosage: DAILY
  12. BYETTA [Suspect]
     Active Substance: EXENATIDE
     Indication: TYPE 2 DIABETES MELLITUS
     Dosage: 250 MCG / 2.4 ML
     Route: 058
     Dates: start: 20150202
  13. TEGRETOL [Concomitant]
     Active Substance: CARBAMAZEPINE
     Indication: SEIZURE
  14. LEVOTHYROXIN [Concomitant]
     Active Substance: LEVOTHYROXINE
  15. OMEPRAZOLE. [Suspect]
     Active Substance: OMEPRAZOLE
     Route: 048
  16. DONEPEZIL HCL [Concomitant]
     Active Substance: DONEPEZIL HYDROCHLORIDE
  17. TEGRETOL [Concomitant]
     Active Substance: CARBAMAZEPINE
     Indication: NEUROPATHY PERIPHERAL
  18. LASIX (FURFEMIDE) [Concomitant]
  19. GLIPIZIDE. [Concomitant]
     Active Substance: GLIPIZIDE
     Indication: TYPE 2 DIABETES MELLITUS
  20. STOOL SOFTENER [Concomitant]
     Active Substance: DOCUSATE CALCIUM
  21. ALOR-CON- M10 ER 10MEQ [Concomitant]
  22. FLAXSEED [Concomitant]
     Active Substance: FLAX SEED

REACTIONS (1)
  - Injection site nodule [Unknown]
